FAERS Safety Report 9034877 (Version 1)
Quarter: 2013Q1

REPORT INFORMATION
  Report Type: Spontaneous
  Country: GB (occurrence: None)
  Receive Date: 20130115
  Receipt Date: 20130115
  Transmission Date: 20140127
  Serious: Yes (Death, Hospitalization, Other)
  Sender: FDA-Public Use
  Company Number: 1549225

PATIENT
  Age: 10 Month
  Sex: Female

DRUGS (6)
  1. ERYTHROMYCIN [Suspect]
     Indication: NASOPHARYNGITIS
     Dosage: 1 DF DOSAGE FORM
     Dates: start: 20121126
  2. PHENYTOIN [Suspect]
     Indication: CONVULSION
     Route: 042
     Dates: start: 20121127, end: 20121127
  3. MIDAZOLAM [Suspect]
     Indication: CONVULSION
     Dosage: 2.5 MG MILLIGRAM(S), AS NECESSARY, OTHER
  4. DIAZEPAM [Suspect]
     Indication: CONVULSION
     Route: 054
     Dates: start: 20121127, end: 20121127
  5. LEVETIRACETAM [Concomitant]
  6. VALPROATE [Concomitant]

REACTIONS (6)
  - Respiratory acidosis [None]
  - Cardiac arrest neonatal [None]
  - Drug ineffective [None]
  - Tachycardia [None]
  - Hypoventilation [None]
  - Drug interaction [None]
